FAERS Safety Report 11205298 (Version 1)
Quarter: 2015Q2

REPORT INFORMATION
  Report Type: Spontaneous
  Country: SI (occurrence: SI)
  Receive Date: 20150622
  Receipt Date: 20150622
  Transmission Date: 20150821
  Serious: Yes (Other)
  Sender: FDA-Public Use
  Company Number: SI-JNJFOC-20150609042

PATIENT
  Sex: Male

DRUGS (7)
  1. CIPRALEX [Concomitant]
     Active Substance: ESCITALOPRAM OXALATE
     Route: 048
  2. FLIXOTIDE [Concomitant]
     Active Substance: FLUTICASONE PROPIONATE
     Dosage: 2 X 1
     Route: 055
  3. ASPIRIN PROTECT [Concomitant]
     Active Substance: ASPIRIN
     Route: 048
  4. STELARA [Suspect]
     Active Substance: USTEKINUMAB
     Indication: NAIL PSORIASIS
     Route: 058
     Dates: start: 20130516, end: 20141007
  5. KVENTIAX [Concomitant]
     Route: 048
  6. BERODUAL [Concomitant]
     Active Substance: FENOTEROL HYDROBROMIDE\IPRATROPIUM BROMIDE
     Route: 055
  7. PRENESSA [Concomitant]
     Active Substance: PERINDOPRIL
     Route: 048

REACTIONS (1)
  - Malignant melanoma [Recovered/Resolved]
